FAERS Safety Report 14583861 (Version 1)
Quarter: 2018Q1

REPORT INFORMATION
  Report Type: Spontaneous
  Country: US (occurrence: US)
  Receive Date: 20180228
  Receipt Date: 20180228
  Transmission Date: 20180509
  Serious: Yes (Other)
  Sender: FDA-Public Use
  Company Number: US-MYLANLABS-2018M1013220

PATIENT
  Age: 44 Year
  Sex: Male

DRUGS (2)
  1. OCTREOTIDE. [Suspect]
     Active Substance: OCTREOTIDE
     Indication: SECRETORY ADENOMA OF PITUITARY
     Dosage: 50 ?G, UNK
     Route: 058
  2. OCTREOTIDE. [Suspect]
     Active Substance: OCTREOTIDE
     Dosage: 100 ?G, UNK
     Route: 058

REACTIONS (1)
  - Irritable bowel syndrome [Unknown]
